FAERS Safety Report 20450877 (Version 1)
Quarter: 2022Q1

REPORT INFORMATION
  Report Type: Spontaneous
  Country: CN (occurrence: CN)
  Receive Date: 20220209
  Receipt Date: 20220209
  Transmission Date: 20220423
  Serious: Yes (Other)
  Sender: FDA-Public Use
  Company Number: CN-PFIZER INC-202200167973

PATIENT
  Age: 4 Year
  Sex: Male
  Weight: 17 kg

DRUGS (7)
  1. SOLU-MEDROL [Suspect]
     Active Substance: METHYLPREDNISOLONE SODIUM SUCCINATE
     Indication: Asthma
     Dosage: 15 MG, 3X/DAY
     Route: 041
     Dates: start: 20220111, end: 20220114
  2. DEXTROSE [Concomitant]
     Active Substance: DEXTROSE
     Indication: Vehicle solution use
     Dosage: 50, 3X/DAY
     Route: 041
     Dates: start: 20220111, end: 20220114
  3. AMBROXOL [Concomitant]
     Active Substance: AMBROXOL
     Indication: Productive cough
     Dosage: UNK
     Dates: start: 20220111
  4. AMBROXOL [Concomitant]
     Active Substance: AMBROXOL
     Indication: Asthma
  5. ALBUTEROL [Concomitant]
     Active Substance: ALBUTEROL
     Indication: Asthma
     Dosage: UNK
     Dates: start: 20220111
  6. BUDESONIDE [Concomitant]
     Active Substance: BUDESONIDE
     Indication: Asthma
     Dosage: UNK
     Dates: start: 20220111
  7. INTERFERON [Concomitant]
     Active Substance: INTERFERON
     Indication: Asthma
     Dosage: UNK
     Dates: start: 20220111

REACTIONS (4)
  - Ocular hypertension [Recovering/Resolving]
  - Conjunctival hyperaemia [Unknown]
  - Eye pain [Recovering/Resolving]
  - Blood pressure increased [Recovering/Resolving]

NARRATIVE: CASE EVENT DATE: 20220112
